FAERS Safety Report 19271244 (Version 3)
Quarter: 2021Q2

REPORT INFORMATION
  Report Type: Spontaneous
  Country: US (occurrence: US)
  Receive Date: 20210518
  Receipt Date: 20210610
  Transmission Date: 20210717
  Serious: No
  Sender: FDA-Public Use
  Company Number: US-SA-2021SA093994

PATIENT
  Age: 48 Year
  Sex: Male

DRUGS (1)
  1. DUPIXENT [Suspect]
     Active Substance: DUPILUMAB
     Indication: ASTHMA
     Dosage: 300 MG, QOW
     Route: 058
     Dates: start: 202011

REACTIONS (5)
  - Unevaluable event [Unknown]
  - Product use issue [Unknown]
  - Therapeutic response decreased [Unknown]
  - Asthma [Unknown]
  - Injection site pain [Unknown]

NARRATIVE: CASE EVENT DATE: 202011
